FAERS Safety Report 5572272-1 (Version None)
Quarter: 2007Q4

REPORT INFORMATION
  Report Type: 
  Country: None (occurrence: None)
  Receive Date: 20071221
  Receipt Date: 20071210
  Transmission Date: 20080405
  Serious: Yes (Other)
  Sender: FDA-Public Use
  Company Number: JP-PFIZER INC-2007104743

PATIENT
  Age: 35 Year
  Sex: Female

DRUGS (3)
  1. GABAPEN [Suspect]
     Indication: PARTIAL SEIZURES
     Dosage: DAILY DOSE:1200MG
     Route: 048
  2. ZONISAMIDE [Interacting]
     Indication: PARTIAL SEIZURES
     Dosage: DAILY DOSE:200MG
     Route: 048
  3. ALL OTHER THERAPEUTIC PRODUCTS [Interacting]
     Indication: MOTION SICKNESS
     Dosage: TEXT:2 TABLETS
     Route: 048

REACTIONS (2)
  - DRUG INTERACTION [None]
  - EPILEPSY [None]
